FAERS Safety Report 21284772 (Version 1)
Quarter: 2022Q3

REPORT INFORMATION
  Report Type: Spontaneous
  Country: US (occurrence: US)
  Receive Date: 20220902
  Receipt Date: 20220902
  Transmission Date: 20221027
  Serious: No
  Sender: FDA-Public Use
  Company Number: ENDG21-07202

PATIENT
  Age: 38 Year
  Sex: Male
  Weight: 117.9 kg

DRUGS (7)
  1. PREDNISONE [Suspect]
     Active Substance: PREDNISONE
     Indication: Drug hypersensitivity
     Dosage: 3 DF, UNKNOWN
     Route: 065
     Dates: start: 202109
  2. ALBUTEROL [Concomitant]
     Active Substance: ALBUTEROL
     Indication: Anaphylactic shock
     Dosage: UNK UNKNOWN, UNKNOWN
     Route: 065
     Dates: start: 202109
  3. ALBUTEROL [Concomitant]
     Active Substance: ALBUTEROL
     Indication: Asthma
     Dosage: UNK UNKNOWN, UNKNOWN
     Route: 065
  4. Endomyocin [Concomitant]
     Indication: Gout
     Dosage: 50 MG, DAILY (ONCE TO TWICE A DAY)
     Route: 065
  5. COLCHICINE [Concomitant]
     Active Substance: COLCHICINE
     Indication: Gout
     Dosage: 2 DF, UNKNOWN
     Route: 065
     Dates: start: 202109
  6. COLCHICINE [Concomitant]
     Active Substance: COLCHICINE
     Dosage: 1 DF, UNKNOWN
     Route: 065
     Dates: start: 202109
  7. COLCHICINE [Concomitant]
     Active Substance: COLCHICINE
     Dosage: 1 DF, UNKNOWN
     Route: 065
     Dates: start: 202109

REACTIONS (1)
  - Drug ineffective [Unknown]

NARRATIVE: CASE EVENT DATE: 20210901
